FAERS Safety Report 7550262-7 (Version None)
Quarter: 2011Q2

REPORT INFORMATION
  Report Type: 
  Country: None (occurrence: None)
  Receive Date: 20110615
  Receipt Date: 20110615
  Transmission Date: 20111010
  Serious: Yes (Other)
  Sender: FDA-Public Use
  Company Number: US-PFIZER INC-2011123149

PATIENT
  Sex: Female
  Weight: 72.562 kg

DRUGS (2)
  1. LYRICA [Suspect]
     Indication: POST HERPETIC NEURALGIA
     Dosage: 75 MG, 1X/DAY
     Route: 048
     Dates: start: 20110526, end: 20110602
  2. NORCO [Concomitant]
     Indication: POST HERPETIC NEURALGIA
     Dosage: 10/375 MG, ONCE DAILY
     Route: 048

REACTIONS (6)
  - FATIGUE [None]
  - ERYTHEMA MULTIFORME [None]
  - PYREXIA [None]
  - PAIN IN EXTREMITY [None]
  - PANIC ATTACK [None]
  - SOMNOLENCE [None]
